FAERS Safety Report 6426925-3 (Version None)
Quarter: 2009Q4

REPORT INFORMATION
  Report Type: 
  Country: None (occurrence: None)
  Receive Date: 20091103
  Receipt Date: 20091103
  Transmission Date: 20100525
  Serious: No
  Sender: FDA-Public Use
  Company Number: None

PATIENT
  Age: 80 Year
  Sex: Male
  Weight: 55.8 kg

DRUGS (2)
  1. IMIPRAMINE [Suspect]
     Dosage: 10 MG BID PO
     Route: 048
     Dates: start: 20080918, end: 20090124
  2. ACETAMINOPHEN AND HYDROCODONE BITARTRATE [Suspect]
     Dosage: 5/500 MG PRN PO
     Route: 048
     Dates: start: 20081224, end: 20090122

REACTIONS (1)
  - CONSTIPATION [None]
